FAERS Safety Report 25584002 (Version 1)
Quarter: 2025Q3

REPORT INFORMATION
  Report Type: Report from Study
  Country: US (occurrence: US)
  Receive Date: 20250721
  Receipt Date: 20250721
  Transmission Date: 20251020
  Serious: No
  Sender: SUNOVION
  Company Number: US-SUMITOMO PHARMA SWITZERLAND GMBH-2025SPA008526

PATIENT

DRUGS (22)
  1. ORGOVYX [Suspect]
     Active Substance: RELUGOLIX
     Indication: Prostate cancer
     Route: 048
     Dates: start: 20250429
  2. ORGOVYX [Suspect]
     Active Substance: RELUGOLIX
     Route: 048
     Dates: start: 20250430
  3. ACETAMINOPHEN [Concomitant]
     Active Substance: ACETAMINOPHEN
     Route: 065
  4. BETAPACE [Concomitant]
     Active Substance: SOTALOL HYDROCHLORIDE
     Route: 065
  5. CALTRATE [Concomitant]
     Active Substance: CALCIUM CARBONATE
     Route: 065
  6. CLARITIN [Concomitant]
     Active Substance: LORATADINE
     Route: 065
  7. DUPIXENT [Concomitant]
     Active Substance: DUPILUMAB
     Route: 065
  8. ELIQUIS [Concomitant]
     Active Substance: APIXABAN
     Route: 065
  9. FUROSEMIDE [Concomitant]
     Active Substance: FUROSEMIDE
     Route: 065
  10. GABAPENTIN [Concomitant]
     Active Substance: GABAPENTIN
     Route: 065
  11. LORATADINE [Concomitant]
     Active Substance: LORATADINE
     Route: 065
  12. LOSARTAN [Concomitant]
     Active Substance: LOSARTAN
     Route: 065
  13. METAMUCIL [Concomitant]
     Active Substance: PLANTAGO SEED
     Route: 065
  14. NUBEQA [Concomitant]
     Active Substance: DAROLUTAMIDE
     Route: 065
  15. POTASSIUM CHLORIDE [Concomitant]
     Active Substance: POTASSIUM CHLORIDE
     Route: 065
  16. PREDNISONE [Concomitant]
     Active Substance: PREDNISONE
     Route: 065
  17. RECLAST [Concomitant]
     Active Substance: ZOLEDRONIC ACID
     Route: 065
  18. SOTALOL [Concomitant]
     Active Substance: SOTALOL
     Route: 065
  19. B12 [Concomitant]
     Route: 060
  20. TORSEMIDE [Concomitant]
     Active Substance: TORSEMIDE
     Route: 065
  21. VITAMIN D3 [Concomitant]
     Active Substance: CHOLECALCIFEROL
     Route: 065
  22. ZYRTEC [Concomitant]
     Active Substance: CETIRIZINE HYDROCHLORIDE
     Route: 065

REACTIONS (1)
  - Constipation [Unknown]
